FAERS Safety Report 9419101 (Version 3)
Quarter: 2013Q3

REPORT INFORMATION
  Report Type: Spontaneous
  Country: JP (occurrence: JP)
  Receive Date: 20130725
  Receipt Date: 20130829
  Transmission Date: 20140515
  Serious: Yes (Hospitalization)
  Sender: FDA-Public Use
  Company Number: JP-ASTELLAS-2013JP007829

PATIENT
  Age: 61 Year
  Sex: Male

DRUGS (7)
  1. VESICARE [Suspect]
     Dosage: 5 MG, UNKNOWN/D
     Route: 048
     Dates: start: 201212, end: 201304
  2. HARNAL [Suspect]
     Dosage: 0.2 MG, UNKNOWN/D
     Route: 048
  3. ZYPREXA [Concomitant]
     Route: 048
  4. RISPERDAL [Concomitant]
     Route: 048
  5. AKINETON                           /00079502/ [Concomitant]
     Route: 048
  6. LIMAS [Concomitant]
     Route: 048
  7. SILECE [Concomitant]
     Route: 048

REACTIONS (1)
  - Rhabdomyolysis [Unknown]
